FAERS Safety Report 15225095 (Version 4)
Quarter: 2018Q3

REPORT INFORMATION
  Report Type: Spontaneous
  Country: US (occurrence: US)
  Receive Date: 20180801
  Receipt Date: 20180904
  Transmission Date: 20181010
  Serious: No
  Sender: FDA-Public Use
  Company Number: US-ASTRAZENECA-2018SE90742

PATIENT
  Age: 74 Year
  Sex: Female
  Weight: 91.2 kg

DRUGS (1)
  1. BYDUREON [Suspect]
     Active Substance: EXENATIDE
     Indication: TYPE 2 DIABETES MELLITUS
     Route: 058
     Dates: start: 20160906, end: 20180719

REACTIONS (4)
  - Wrong technique in product usage process [Recovered/Resolved]
  - Intentional product misuse [Unknown]
  - Device defective [Recovered/Resolved]
  - Burning sensation [Unknown]
